FAERS Safety Report 5255578-5 (Version None)
Quarter: 2007Q1

REPORT INFORMATION
  Report Type: 
  Country: None (occurrence: None)
  Receive Date: 20070228
  Receipt Date: 20070219
  Transmission Date: 20070707
  Serious: Yes (Other)
  Sender: FDA-Public Use
  Company Number: GXKR2007GB01771

PATIENT
  Age: 33 Year
  Sex: Female

DRUGS (3)
  1. AZITHROMYCIN [Suspect]
     Dosage: 1 G, UNK, UNK
     Dates: start: 20070202
  2. FOLIC ACID [Concomitant]
  3. IRON (IRON) [Concomitant]

REACTIONS (5)
  - ABDOMINAL PAIN [None]
  - CAESAREAN SECTION [None]
  - DRUG EXPOSURE DURING PREGNANCY [None]
  - FOETAL MOVEMENTS DECREASED [None]
  - INTRA-UTERINE DEATH [None]
